FAERS Safety Report 11968241 (Version 7)
Quarter: 2017Q1

REPORT INFORMATION
  Report Type: Spontaneous
  Country: JP (occurrence: JP)
  Receive Date: 20160127
  Receipt Date: 20170102
  Transmission Date: 20170428
  Serious: Yes (Death, Life-Threatening)
  Sender: FDA-Public Use
  Company Number: JP-ROCHE-1701330

PATIENT
  Age: 69 Year
  Sex: Male
  Weight: 41 kg

DRUGS (5)
  1. ACTEMRA [Suspect]
     Active Substance: TOCILIZUMAB
     Indication: RHEUMATOID ARTHRITIS
     Dosage: MOST RECENT DOSE PRIOR TO THE EVENT ON 07/JAN/2016
     Route: 041
     Dates: start: 20140415, end: 20160107
  2. GASLON [Concomitant]
     Active Substance: IRSOGLADINE MALEATE
     Dosage: DOSAGE IS UNCERTAIN.
     Route: 048
     Dates: end: 201509
  3. CEFAZOLIN SODIUM. [Concomitant]
     Active Substance: CEFAZOLIN SODIUM
     Route: 041
     Dates: start: 20140924, end: 20140924
  4. LOXOPROFEN [Concomitant]
     Active Substance: LOXOPROFEN
     Dosage: THE FRACTIONATION DOSE FREQUENCY IS UNCERTAIN. ?DOSE INTERVAL UNCERTAINTY
     Route: 048
     Dates: start: 20140925, end: 20141015
  5. CELECOX [Concomitant]
     Active Substance: CELECOXIB
     Indication: SKIN EXFOLIATION
     Dosage: DOSAGE IS UNCERTAIN.
     Route: 048
     Dates: start: 20140516, end: 20140908

REACTIONS (8)
  - Hepatic atrophy [Fatal]
  - Platelet count decreased [Unknown]
  - Blood lactate dehydrogenase increased [Unknown]
  - Hepatic failure [Fatal]
  - White blood cell count decreased [Unknown]
  - Haemorrhage [Fatal]
  - Shock haemorrhagic [Fatal]
  - Protein total decreased [Unknown]

NARRATIVE: CASE EVENT DATE: 201409
